FAERS Safety Report 18640054 (Version 1)
Quarter: 2020Q4

REPORT INFORMATION
  Report Type: Spontaneous
  Country: US (occurrence: US)
  Receive Date: 20201220
  Receipt Date: 20201220
  Transmission Date: 20210114
  Serious: No
  Sender: FDA-Public Use
  Company Number: US-PACIRA-202000435

PATIENT

DRUGS (3)
  1. BUPIV (BUPIVACAINE HCL) [Suspect]
     Active Substance: BUPIVACAINE HYDROCHLORIDE
     Indication: NERVE BLOCK
     Dosage: 18 ML WITH 10 ML OF EXPAREL
     Route: 065
  2. EXPAREL [Suspect]
     Active Substance: BUPIVACAINE
     Indication: NERVE BLOCK
     Dosage: 10 ML WITH 18 ML 0.375% BUPIVACAINE
     Route: 065
  3. OPIOIDS [Concomitant]
     Active Substance: UNSPECIFIED INGREDIENT
     Indication: POSTOPERATIVE ANALGESIA
     Dosage: UNKNOWN

REACTIONS (3)
  - Drug ineffective [Unknown]
  - Incorrect dose administered [Unknown]
  - Hypoaesthesia [Unknown]
